FAERS Safety Report 15761603 (Version 1)
Quarter: 2018Q4

REPORT INFORMATION
  Report Type: Spontaneous
  Country: US (occurrence: US)
  Receive Date: 20181207
  Receipt Date: 20181207
  Transmission Date: 20190205
  Serious: Yes (Hospitalization)
  Sender: FDA-Public Use
  Company Number: None

PATIENT
  Sex: Female
  Weight: 68 kg

DRUGS (4)
  1. PACLITAXEL 80MG/M2 [Suspect]
     Active Substance: PACLITAXEL
     Indication: BREAST CANCER
     Route: 042
     Dates: start: 20180727, end: 20181109
  2. CARBOPLATIN AUC 2 [Suspect]
     Active Substance: CARBOPLATIN
     Indication: BREAST CANCER
     Route: 042
     Dates: start: 20180727, end: 20181109
  3. PERTUZUMAB. [Suspect]
     Active Substance: PERTUZUMAB
     Route: 042
     Dates: start: 20180727, end: 20181019
  4. TRASTUZUMAB 8MG/KG C1, 6MG/KG C2-4 [Suspect]
     Active Substance: TRASTUZUMAB
     Dosage: ?          OTHER STRENGTH:8MG/KG C1, 6MG/KG ;OTHER DOSE:544MG, 408MG;?
     Route: 042
     Dates: start: 20180727, end: 20181019

REACTIONS (17)
  - Hypotension [None]
  - Nausea [None]
  - White blood cell count decreased [None]
  - Dysuria [None]
  - Pleural effusion [None]
  - Flank pain [None]
  - Anaemia [None]
  - Sepsis [None]
  - Myalgia [None]
  - Abdominal pain [None]
  - Non-cardiac chest pain [None]
  - Sinus tachycardia [None]
  - Haematuria [None]
  - Kidney infection [None]
  - Vomiting [None]
  - Hypokalaemia [None]
  - Fatigue [None]

NARRATIVE: CASE EVENT DATE: 20181128
